FAERS Safety Report 8029697-4 (Version None)
Quarter: 2012Q1

REPORT INFORMATION
  Report Type: 
  Country: None (occurrence: None)
  Receive Date: 20120109
  Receipt Date: 20120106
  Transmission Date: 20120608
  Serious: Yes (Other)
  Sender: FDA-Public Use
  Company Number: US-PFIZER INC-2012004952

PATIENT
  Age: 59 Year
  Sex: Female
  Weight: 123 kg

DRUGS (6)
  1. CHANTIX [Suspect]
     Dosage: 0.5MG, DAILY
     Route: 048
     Dates: start: 20120106
  2. TRAZODONE [Concomitant]
     Indication: AFFECTIVE DISORDER
     Dosage: 300 MG, 1X/DAY
  3. CELEXA [Concomitant]
     Indication: ANTIDEPRESSANT THERAPY
     Dosage: 40 MG, DAILY
  4. KLONOPIN [Concomitant]
     Indication: ANXIOLYTIC THERAPY
     Dosage: 1MG IN MORNING AND 2MG AT NIGHT
  5. CHANTIX [Suspect]
     Indication: SMOKING CESSATION THERAPY
     Dosage: UNK
     Route: 048
     Dates: start: 20110101, end: 20110101
  6. BENADRYL [Concomitant]
     Indication: SLEEP DISORDER
     Dosage: 100 MG, 1X/DAY

REACTIONS (3)
  - DYSPNOEA [None]
  - CHEST DISCOMFORT [None]
  - COUGH [None]
